FAERS Safety Report 13573679 (Version 1)
Quarter: 2017Q2

REPORT INFORMATION
  Report Type: Spontaneous
  Country: US (occurrence: US)
  Receive Date: 20170523
  Receipt Date: 20170523
  Transmission Date: 20170830
  Serious: Yes (Other)
  Sender: FDA-Public Use
  Company Number: None

PATIENT
  Age: 68 Year
  Sex: Female
  Weight: 62.2 kg

DRUGS (12)
  1. FISH OIL [Concomitant]
     Active Substance: FISH OIL
  2. ESCITALOPRAM [Concomitant]
     Active Substance: ESCITALOPRAM OXALATE
  3. VITAMIN D3 [Concomitant]
     Active Substance: CHOLECALCIFEROL
  4. MULTIVITAMIN [Suspect]
     Active Substance: VITAMINS
  5. AVEDA EXFOLIATING SHAMPOO [Concomitant]
  6. AVEDA SCALP REVITALIZER [Concomitant]
  7. FLUTICASONE. [Concomitant]
     Active Substance: FLUTICASONE
  8. ACT NASAL SPRAY [Concomitant]
  9. ATENOLOL. [Suspect]
     Active Substance: ATENOLOL
  10. GLUCOSAMINE [Concomitant]
     Active Substance: GLUCOSAMINE
  11. AVEDA THICKING CONDITIONER [Concomitant]
  12. ALENDRONATE SODIUM TABLETS, USP [Suspect]
     Active Substance: ALENDRONATE SODIUM
     Indication: BONE DENSITY ABNORMAL
     Dosage: 70 MG 1 PILL ONCE WEEKLY MOUTH
     Route: 048
     Dates: start: 20161020, end: 20170409

REACTIONS (1)
  - Alopecia [None]

NARRATIVE: CASE EVENT DATE: 20161210
